FAERS Safety Report 6913369-0 (Version None)
Quarter: 2010Q3

REPORT INFORMATION
  Report Type: 
  Country: None (occurrence: None)
  Receive Date: 20100809
  Receipt Date: 20100802
  Transmission Date: 20110219
  Serious: Yes (Other)
  Sender: FDA-Public Use
  Company Number: GB-TEVA-243332ISR

PATIENT
  Age: 43 Year
  Sex: Male

DRUGS (2)
  1. PREDNISOLONE [Suspect]
     Indication: CROHN'S DISEASE
     Route: 048
  2. PREDNISOLONE SODIUM SULFOBENZOATE [Suspect]
     Indication: CROHN'S DISEASE

REACTIONS (1)
  - CHORIORETINOPATHY [None]
